FAERS Safety Report 7366812-X (Version None)
Quarter: 2011Q1

REPORT INFORMATION
  Report Type: 
  Country: None (occurrence: None)
  Receive Date: 20110322
  Receipt Date: 20110314
  Transmission Date: 20110831
  Serious: Yes (Hospitalization)
  Sender: FDA-Public Use
  Company Number: US-ROCHE-766247

PATIENT
  Sex: Male
  Weight: 60.8 kg

DRUGS (1)
  1. CAPECITABINE [Suspect]
     Indication: COLORECTAL CANCER
     Route: 048
     Dates: start: 20100701, end: 20100901

REACTIONS (4)
  - HAEMORRHAGE [None]
  - WEIGHT DECREASED [None]
  - DIABETES MELLITUS [None]
  - DEPRESSION [None]
